FAERS Safety Report 8273382-0 (Version None)
Quarter: 2012Q2

REPORT INFORMATION
  Report Type: 
  Country: None (occurrence: None)
  Receive Date: 20120411
  Receipt Date: 20120406
  Transmission Date: 20120825
  Serious: Yes (Hospitalization)
  Sender: FDA-Public Use
  Company Number: PHHY2012SI026803

PATIENT
  Sex: Female

DRUGS (18)
  1. LORAZEPAM [Suspect]
     Indication: DEPRESSION
  2. RISPERIDONE [Suspect]
     Indication: DEMENTIA ALZHEIMER'S TYPE
     Dosage: 0.5 MG, UNK
     Route: 048
  3. FLUOXETINE [Suspect]
     Indication: DEMENTIA ALZHEIMER'S TYPE
     Dosage: 20 MG, BID
     Route: 048
  4. EXELON [Suspect]
     Indication: DEMENTIA ALZHEIMER'S TYPE
     Dosage: 6 MG, BID
     Route: 048
  5. EXELON [Suspect]
     Indication: DEPRESSION
  6. BUPRENORPHINE [Concomitant]
  7. LANTREA [Concomitant]
  8. BERODUAL [Concomitant]
  9. ZOLPIDEM TARTRATE [Suspect]
     Indication: DEMENTIA ALZHEIMER'S TYPE
     Dosage: 20 MG, UNK
     Route: 048
  10. FLUOXETINE [Suspect]
     Indication: DEPRESSION
  11. ZOLPIDEM TARTRATE [Suspect]
     Indication: DEPRESSION
  12. NEURONTIN [Suspect]
     Indication: DEPRESSION
  13. LORAZEPAM [Suspect]
     Indication: DEMENTIA ALZHEIMER'S TYPE
     Dosage: 2.5 MG, TID
     Route: 048
  14. PROMAZINE HYDROCHLORIDE [Suspect]
     Indication: DEMENTIA ALZHEIMER'S TYPE
     Dosage: 25 MG, UNK
     Route: 048
  15. PROMAZINE HYDROCHLORIDE [Suspect]
     Indication: DEPRESSION
  16. VALSACOR [Concomitant]
  17. RISPERIDONE [Suspect]
     Indication: DEPRESSION
  18. NEURONTIN [Suspect]
     Indication: DEMENTIA ALZHEIMER'S TYPE
     Dosage: 100 MG, BID
     Route: 048

REACTIONS (3)
  - PNEUMONIA ASPIRATION [None]
  - ASPIRATION [None]
  - SOMNOLENCE [None]
